FAERS Safety Report 4707742-9 (Version None)
Quarter: 2005Q2

REPORT INFORMATION
  Report Type: 
  Country: None (occurrence: None)
  Receive Date: 20050629
  Receipt Date: 20050517
  Transmission Date: 20051028
  Serious: No
  Sender: FDA-Public Use
  Company Number: 05P-163-0300684

PATIENT
  Age: 78 Year
  Sex: Female
  Weight: 49.8957 kg

DRUGS (10)
  1. HUMIRA [Suspect]
     Indication: RHEUMATOID ARTHRITIS
     Dosage: 40 MG, 1 IN 2 WK, SUBCUTANEOUS
     Route: 058
     Dates: start: 20040101, end: 20050401
  2. METHOTREXATE [Concomitant]
  3. TRILISATE [Concomitant]
  4. SULFASALAZINE [Concomitant]
  5. METOPROLOL [Concomitant]
  6. CAPTOPRIL [Concomitant]
  7. LEVOTHYROXINE SODIUM [Concomitant]
  8. TIMOLOL MALEATE [Concomitant]
  9. LATANOPROST [Concomitant]
  10. MULTI-VITAMINS [Concomitant]

REACTIONS (4)
  - CONDITION AGGRAVATED [None]
  - DEPRESSION [None]
  - DIZZINESS [None]
  - VISUAL DISTURBANCE [None]
